FAERS Safety Report 7643631-8 (Version None)
Quarter: 2011Q3

REPORT INFORMATION
  Report Type: 
  Country: None (occurrence: None)
  Receive Date: 20110729
  Receipt Date: 20110725
  Transmission Date: 20111222
  Serious: Yes (Death)
  Sender: FDA-Public Use
  Company Number: PHHY2011SK51004

PATIENT
  Sex: Female

DRUGS (2)
  1. ZOMETA [Suspect]
     Indication: METASTASES TO BONE
  2. LEVOTHYROXINE SODIUM [Concomitant]

REACTIONS (2)
  - NEOPLASM PROGRESSION [None]
  - NEOPLASM MALIGNANT [None]
